FAERS Safety Report 11583831 (Version 3)
Quarter: 2015Q4

REPORT INFORMATION
  Report Type: Spontaneous
  Country: US (occurrence: US)
  Receive Date: 20151001
  Receipt Date: 20151222
  Transmission Date: 20160304
  Serious: Yes (Hospitalization)
  Sender: FDA-Public Use
  Company Number: US-BEH-2015054143

PATIENT
  Age: 90 Year
  Sex: Female
  Weight: 61 kg

DRUGS (1)
  1. KCENTRA [Suspect]
     Active Substance: COAGULATION FACTOR IX HUMAN\COAGULATION FACTOR VII HUMAN\COAGULATION FACTOR X HUMAN\PROTEIN C\PROTEIN S HUMAN\PROTHROMBIN
     Indication: CEREBRAL HAEMORRHAGE
     Route: 042
     Dates: start: 20150908, end: 20150908

REACTIONS (2)
  - Cerebrovascular accident [Not Recovered/Not Resolved]
  - Thrombosis [Not Recovered/Not Resolved]

NARRATIVE: CASE EVENT DATE: 201509
